FAERS Safety Report 16623599 (Version 2)
Quarter: 2019Q4

REPORT INFORMATION
  Report Type: Spontaneous
  Country: JP (occurrence: JP)
  Receive Date: 20190724
  Receipt Date: 20191010
  Transmission Date: 20200122
  Serious: Yes (Other)
  Sender: FDA-Public Use
  Company Number: JP-009507513-1907JPN013113

PATIENT
  Sex: Female
  Weight: 39.8 kg

DRUGS (20)
  1. XARELTO [Suspect]
     Active Substance: RIVAROXABAN
     Dosage: 10 MG, QD
     Route: 048
     Dates: start: 20190427, end: 20190520
  2. BELSOMRA [Concomitant]
     Active Substance: SUVOREXANT
     Dosage: 3 MG, QD
     Route: 048
     Dates: start: 20190603
  3. HEPARIN [Suspect]
     Active Substance: HEPARIN SODIUM
     Dosage: 12500 DF, QD
     Route: 041
     Dates: start: 20190529, end: 20190603
  4. FUROSEMIDE. [Concomitant]
     Active Substance: FUROSEMIDE
     Dosage: 10 MG, QD
     Route: 048
  5. MINOMYCIN [Concomitant]
     Active Substance: MINOCYCLINE HYDROCHLORIDE
     Dosage: 100 MG, BID
     Route: 048
     Dates: start: 20190427, end: 20190504
  6. POLAPREZINC [Concomitant]
     Active Substance: POLAPREZINC
     Dosage: 75 MG, BID
     Route: 048
     Dates: start: 20190419
  7. TEPRENONE [Concomitant]
     Active Substance: TEPRENONE
     Dosage: 50 MG, QD
     Route: 048
     Dates: start: 20190504, end: 20190513
  8. BELSOMRA [Concomitant]
     Active Substance: SUVOREXANT
     Dosage: 15 MG, QD
     Route: 048
     Dates: start: 20190523, end: 20190529
  9. TEDIZOLID PHOSPHATE. [Suspect]
     Active Substance: TEDIZOLID PHOSPHATE
     Indication: INFECTED SKIN ULCER
  10. DIART [Concomitant]
     Active Substance: AZOSEMIDE
     Dosage: 30 MG, QD
     Route: 048
     Dates: start: 20190423, end: 20190507
  11. LOXOPROFEN [Concomitant]
     Active Substance: LOXOPROFEN
     Dosage: 60 MG, QD
     Route: 048
     Dates: start: 20190504, end: 20190513
  12. HEPARIN [Suspect]
     Active Substance: HEPARIN SODIUM
     Dosage: 10000 DF, QD
     Route: 041
     Dates: start: 20190521, end: 20190528
  13. WARFARIN [Concomitant]
     Active Substance: WARFARIN
     Dosage: 1.25 MG, QD
     Route: 048
     Dates: end: 20190425
  14. TEDIZOLID PHOSPHATE. [Suspect]
     Active Substance: TEDIZOLID PHOSPHATE
     Indication: STAPHYLOCOCCAL INFECTION
     Dosage: 200 MG, QD
     Route: 041
     Dates: start: 20190523, end: 20190603
  15. HEPARIN [Suspect]
     Active Substance: HEPARIN SODIUM
     Dosage: 10000 DF, QD
     Route: 041
     Dates: start: 20190604, end: 20190604
  16. PALUX [Suspect]
     Active Substance: ALPROSTADIL
  17. SPIRONOLACTONE. [Concomitant]
     Active Substance: SPIRONOLACTONE
     Dosage: 1.25 MG, QD
     Route: 048
  18. BENZALIN [Concomitant]
     Dosage: 5 MG, QD
     Route: 048
     Dates: start: 20190419, end: 20190522
  19. CALONAL [Concomitant]
     Active Substance: ACETAMINOPHEN
     Dosage: 600 MG, TID
     Route: 048
     Dates: start: 20170509
  20. QUETIAPINE FUMARATE. [Concomitant]
     Active Substance: QUETIAPINE FUMARATE
     Dosage: 25 MG, QD
     Route: 048
     Dates: start: 20190529, end: 20190602

REACTIONS (2)
  - Interstitial lung disease [Unknown]
  - Thrombocytopenia [Recovered/Resolved]

NARRATIVE: CASE EVENT DATE: 20190521
